FAERS Safety Report 4748044-4 (Version None)
Quarter: 2005Q3

REPORT INFORMATION
  Report Type: 
  Country: None (occurrence: None)
  Receive Date: 20050818
  Receipt Date: 20050808
  Transmission Date: 20060218
  Serious: No
  Sender: FDA-Public Use
  Company Number: US-GILEAD-2005-0008603

PATIENT
  Sex: Male

DRUGS (12)
  1. TRUVADA [Suspect]
     Indication: HIV INFECTION
     Route: 048
     Dates: start: 20050627
  2. VIAGRA [Suspect]
     Route: 048
  3. VIRACEPT [Concomitant]
     Indication: HIV INFECTION
     Route: 048
  4. BACTRIM [Concomitant]
     Indication: INFECTION PROPHYLAXIS
     Route: 048
  5. DIFLUCAN [Concomitant]
     Route: 048
  6. OXANDRIN [Concomitant]
     Route: 048
  7. EFFEXOR XR [Concomitant]
     Route: 048
  8. ANDROGEL PUMP [Concomitant]
     Route: 065
  9. LIPITOR [Concomitant]
     Route: 048
  10. VALTREX [Concomitant]
     Route: 048
  11. ENSURE PLUS [Concomitant]
     Indication: HIV WASTING SYNDROME
     Route: 048
  12. MARINOL [Concomitant]
     Route: 048

REACTIONS (2)
  - BLINDNESS TRANSIENT [None]
  - TINNITUS [None]
